FAERS Safety Report 14740345 (Version 2)
Quarter: 2018Q4

REPORT INFORMATION
  Report Type: Report from Study
  Country: FR (occurrence: FR)
  Receive Date: 20180410
  Receipt Date: 20181009
  Transmission Date: 20190204
  Serious: Yes (Life-Threatening)
  Sender: FDA-Public Use
  Company Number: PHHY2018FR057225

PATIENT
  Age: 38 Year
  Sex: Female

DRUGS (4)
  1. NEORAL [Suspect]
     Active Substance: CYCLOSPORINE
     Dosage: UNK UNK, TID
     Route: 065
     Dates: start: 201801
  2. NEORAL [Suspect]
     Active Substance: CYCLOSPORINE
     Indication: PSORIASIS
     Dosage: 3 DF (100 MG), QD
     Route: 065
     Dates: start: 2014, end: 2014
  3. NEORAL [Suspect]
     Active Substance: CYCLOSPORINE
     Dosage: UNK
     Route: 065
     Dates: start: 20180327
  4. DOVOBET [Concomitant]
     Active Substance: BETAMETHASONE\CALCIPOTRIENE
     Indication: PRODUCT USED FOR UNKNOWN INDICATION
     Dosage: 50 MG, UNK (IF CRISIS)
     Route: 065

REACTIONS (15)
  - Fatigue [Unknown]
  - Drug ineffective [Not Recovered/Not Resolved]
  - Skin discolouration [Unknown]
  - Skin exfoliation [Unknown]
  - Formication [Unknown]
  - Feeling abnormal [Unknown]
  - Pruritus [Unknown]
  - Skin depigmentation [Unknown]
  - Suffocation feeling [Unknown]
  - Feeling hot [Unknown]
  - Erythema [Unknown]
  - Pain [Recovered/Resolved]
  - Muscle spasms [Unknown]
  - Headache [Unknown]
  - Skin hypertrophy [Unknown]
